FAERS Safety Report 17750024 (Version 1)
Quarter: 2020Q2

REPORT INFORMATION
  Report Type: Spontaneous
  Country: JP (occurrence: JP)
  Receive Date: 20200506
  Receipt Date: 20200506
  Transmission Date: 20200714
  Serious: Yes (Other)
  Sender: FDA-Public Use
  Company Number: NVSC2020JP119163

PATIENT
  Age: 40 Year
  Sex: Female

DRUGS (5)
  1. CABERGOLINE. [Suspect]
     Active Substance: CABERGOLINE
     Indication: INFERTILITY FEMALE
     Dosage: UNK UNK, QW
     Route: 065
  2. CLOMIPHENE [Suspect]
     Active Substance: CLOMIPHENE
     Indication: INFERTILITY FEMALE
     Dosage: UNK UNK, QMO
     Route: 065
  3. CEFDINIR. [Suspect]
     Active Substance: CEFDINIR
     Indication: INFERTILITY FEMALE
     Dosage: UNK UNK, QMO
     Route: 065
  4. HUMAN CHORIONIC GONADOTROPIN [Suspect]
     Active Substance: GONADOTROPHIN, CHORIONIC
     Indication: INFERTILITY FEMALE
     Dosage: UNK, QW
     Route: 065
  5. MEDROXYPROGESTERONE ACETATE. [Suspect]
     Active Substance: MEDROXYPROGESTERONE ACETATE
     Indication: INFERTILITY FEMALE
     Dosage: UNK, QW
     Route: 065

REACTIONS (1)
  - Stevens-Johnson syndrome [Unknown]
